FAERS Safety Report 10039966 (Version 2)
Quarter: 2014Q1

REPORT INFORMATION
  Report Type: Spontaneous
  Country: GB (occurrence: GB)
  Receive Date: 20140326
  Receipt Date: 20140326
  Transmission Date: 20141002
  Serious: Yes (Hospitalization, Other)
  Sender: FDA-Public Use
  Company Number: GB-JNJFOC-20140305401

PATIENT
  Sex: Male

DRUGS (10)
  1. TOPAMAX [Suspect]
     Indication: TEMPORAL LOBE EPILEPSY
     Route: 048
  2. TOPAMAX [Suspect]
     Indication: TEMPORAL LOBE EPILEPSY
     Route: 048
  3. CARBAMAZEPINE [Concomitant]
     Indication: TEMPORAL LOBE EPILEPSY
     Route: 048
  4. LEVETIRACETAM [Concomitant]
     Indication: TEMPORAL LOBE EPILEPSY
     Route: 048
  5. FUROSEMIDE [Concomitant]
     Indication: PRODUCT USED FOR UNKNOWN INDICATION
     Route: 048
  6. AMILORIDE [Concomitant]
     Indication: PRODUCT USED FOR UNKNOWN INDICATION
     Route: 048
  7. SENNA [Concomitant]
     Indication: CONSTIPATION
     Route: 048
  8. PARACETAMOL [Concomitant]
     Indication: PAIN
     Route: 048
  9. MACROGOL [Concomitant]
     Indication: CONSTIPATION
     Route: 048
  10. AMOXICILLIN [Concomitant]
     Indication: INFECTION
     Route: 048

REACTIONS (2)
  - Hospitalisation [Recovered/Resolved]
  - Drug dose omission [Recovered/Resolved]
